FAERS Safety Report 9011823 (Version 1)
Quarter: 2013Q1

REPORT INFORMATION
  Report Type: Spontaneous
  Country: CH (occurrence: CH)
  Receive Date: 20130113
  Receipt Date: 20130113
  Transmission Date: 20140127
  Serious: Yes (Other)
  Sender: FDA-Public Use
  Company Number: CH-MERCK-1301CHE004099

PATIENT
  Age: 82 Year
  Sex: Male

DRUGS (9)
  1. JANUVIA [Suspect]
     Indication: TYPE 2 DIABETES MELLITUS
     Dosage: 50 MG, UNK
     Route: 048
  2. PRINZIDE [Suspect]
     Indication: ESSENTIAL HYPERTENSION
     Dosage: 1 DF, QD
     Route: 048
  3. PRINZIDE [Suspect]
     Indication: ESSENTIAL HYPERTENSION
  4. SIMVASTATIN [Suspect]
     Indication: HYPERCHOLESTEROLAEMIA
     Dosage: 20 MG, UNK
     Route: 048
  5. FERRUM [Suspect]
     Indication: IRON DEFICIENCY
     Dosage: UNK
     Route: 048
  6. NEXIUM MUPS [Suspect]
     Indication: GASTROOESOPHAGEAL REFLUX DISEASE
     Dosage: 40 MG, UNK
     Route: 048
  7. ASPIRIN CARDIO [Suspect]
     Dosage: 100 MG, QD
     Route: 048
  8. AMLODIPIN [Suspect]
     Dosage: 5 MG, QD
     Route: 048
  9. PRADIF T [Suspect]
     Indication: BENIGN PROSTATIC HYPERPLASIA
     Dosage: 400 MICROGRAM, QD
     Route: 048

REACTIONS (1)
  - Pemphigus [Unknown]
